FAERS Safety Report 8969083 (Version 1)
Quarter: 2012Q4

REPORT INFORMATION
  Report Type: 
  Country: FR (occurrence: FR)
  Receive Date: 20121218
  Receipt Date: 20121218
  Transmission Date: 20130627
  Serious: Yes (Congenital Anomaly, Other)
  Sender: FDA-Public Use
  Company Number: FR-009507513-1108FRA00027B1

PATIENT
  Age: 0 Year
  Sex: Male
  Weight: 3.05 kg

DRUGS (7)
  1. COZAAR [Suspect]
     Dosage: 50 mg, qd
     Route: 064
     Dates: start: 20100727, end: 20101216
  2. XELEVIA [Suspect]
     Dosage: 100 mg, qd
     Route: 064
     Dates: start: 20100727, end: 20101216
  3. STAGID [Suspect]
     Dosage: 700 mg, tid
     Route: 064
     Dates: start: 20100727, end: 20101216
  4. CRESTOR [Suspect]
     Dosage: 5 mg, qd
     Route: 064
     Dates: start: 20100727, end: 20101216
  5. CYMBALTA [Suspect]
     Dosage: 60 mg, qd
     Route: 064
     Dates: start: 20100727, end: 20101216
  6. CYMBALTA [Suspect]
     Dosage: 30 mg, qd
     Route: 064
     Dates: start: 20101216, end: 20110328
  7. LEVOTHYROX [Concomitant]
     Route: 064

REACTIONS (3)
  - Polydactyly [Not Recovered/Not Resolved]
  - Premature baby [Not Recovered/Not Resolved]
  - Anomaly of external ear congenital [Not Recovered/Not Resolved]
